FAERS Safety Report 9816894 (Version 1)
Quarter: 2014Q1

REPORT INFORMATION
  Report Type: Spontaneous
  Country: US (occurrence: US)
  Receive Date: 20140114
  Receipt Date: 20140114
  Transmission Date: 20141002
  Serious: No
  Sender: FDA-Public Use
  Company Number: US-BAUSCH-BL-2013-005405

PATIENT
  Age: 88 Year
  Sex: Male

DRUGS (7)
  1. LOTEMAX (LOTEPREDNOL ETABONATE OPHTHALMIC GEL 0.5%) [Suspect]
     Indication: DRY EYE
     Dosage: 1 DROP; THREE TIMES DAILY; LEFT EYE
     Route: 047
     Dates: start: 20130910, end: 20130914
  2. HYDRALAZINE [Concomitant]
  3. TEKTURNA [Concomitant]
  4. AMLODIPINE [Concomitant]
  5. OMEPRAZOLE [Concomitant]
     Indication: GASTROOESOPHAGEAL REFLUX DISEASE
  6. SIMVASTATIN [Concomitant]
     Indication: BLOOD CHOLESTEROL INCREASED
  7. TAMSULOSIN [Concomitant]

REACTIONS (2)
  - Off label use [Recovered/Resolved]
  - Visual impairment [Recovered/Resolved]
